FAERS Safety Report 6296010-2 (Version None)
Quarter: 2009Q3

REPORT INFORMATION
  Report Type: 
  Country: None (occurrence: None)
  Receive Date: 20090804
  Receipt Date: 20090729
  Transmission Date: 20100115
  Serious: Yes (Hospitalization, Other)
  Sender: FDA-Public Use
  Company Number: AR-BRISTOL-MYERS SQUIBB COMPANY-14682033

PATIENT
  Age: 60 Year
  Sex: Female

DRUGS (3)
  1. ORENCIA [Suspect]
     Indication: RHEUMATOID ARTHRITIS
     Dosage: 3RD INFUSION ON 17JUN09 3RD INFUSION BETWEEN 18/19JUN08  1 DF= 2 BOTTLES
     Route: 042
     Dates: start: 20090520
  2. METHOTREXATE [Suspect]
  3. FOLIC ACID [Concomitant]

REACTIONS (6)
  - FEBRILE NEUTROPENIA [None]
  - LEUKOPENIA [None]
  - OESOPHAGEAL CANDIDIASIS [None]
  - PLEURAL EFFUSION [None]
  - PNEUMONIA [None]
  - PULMONARY MASS [None]
